FAERS Safety Report 12656820 (Version 2)
Quarter: 2016Q3

REPORT INFORMATION
  Report Type: Spontaneous
  Country: US (occurrence: US)
  Receive Date: 20160816
  Receipt Date: 20160818
  Transmission Date: 20161109
  Serious: Yes (Hospitalization, Other)
  Sender: FDA-Public Use
  Company Number: US-MYLANLABS-2016M1033549

PATIENT

DRUGS (3)
  1. GEMCITABINE [Concomitant]
     Active Substance: GEMCITABINE\GEMCITABINE HYDROCHLORIDE
     Route: 065
  2. AMIODARONE [Suspect]
     Active Substance: AMIODARONE
     Indication: VENTRICULAR TACHYCARDIA
     Dosage: 200 MG, BID
     Route: 048
     Dates: start: 201312
  3. CARBOPLATIN. [Concomitant]
     Active Substance: CARBOPLATIN
     Route: 065

REACTIONS (2)
  - Pneumonitis [Recovering/Resolving]
  - Eosinophilic pneumonia [Recovering/Resolving]
